FAERS Safety Report 9239432 (Version 2)
Quarter: 2013Q2

REPORT INFORMATION
  Report Type: Report from Study
  Country: CA (occurrence: CA)
  Receive Date: 20130418
  Receipt Date: 20130429
  Transmission Date: 20140414
  Serious: No
  Sender: FDA-Public Use
  Company Number: CA-ABBOTT-13P-028-1077254-00

PATIENT
  Sex: Male
  Weight: 77.63 kg

DRUGS (1)
  1. LUPRON DEPOT [Suspect]
     Indication: PROSTATE CANCER
     Dosage: 22.5 MG - 3 MONTH DEPOT
     Route: 030
     Dates: start: 20121015

REACTIONS (2)
  - Feeling abnormal [Unknown]
  - Pain [Unknown]
